FAERS Safety Report 17437075 (Version 1)
Quarter: 2020Q1

REPORT INFORMATION
  Report Type: Spontaneous
  Country: US (occurrence: US)
  Receive Date: 20200219
  Receipt Date: 20200219
  Transmission Date: 20200409
  Serious: Yes (Death, Hospitalization)
  Sender: FDA-Public Use
  Company Number: US-TEVA-2020-US-1186402

PATIENT
  Sex: Male

DRUGS (11)
  1. AMPICILLIN [Suspect]
     Active Substance: AMPICILLIN
     Indication: INFECTION PROPHYLAXIS
     Dosage: EVERY 6 X 48 HOURS
     Route: 064
  2. AMPICILLIN [Suspect]
     Active Substance: AMPICILLIN
     Indication: PROPHYLAXIS
     Route: 064
  3. ERYTHROMYCIN. [Suspect]
     Active Substance: ERYTHROMYCIN
     Indication: PROPHYLAXIS
  4. MAGNESIUM SULFATE. [Suspect]
     Active Substance: MAGNESIUM SULFATE
     Indication: DRUG THERAPY
     Route: 064
  5. DOBUTAMINE [Suspect]
     Active Substance: DOBUTAMINE HYDROCHLORIDE
     Indication: BLOOD PRESSURE DECREASED
     Route: 065
  6. NOREPINEPHRINE. [Suspect]
     Active Substance: NOREPINEPHRINE
     Indication: BLOOD PRESSURE DECREASED
     Route: 065
  7. ERYTHROMYCIN. [Suspect]
     Active Substance: ERYTHROMYCIN
     Indication: INFECTION PROPHYLAXIS
     Route: 064
  8. AZITHROMYCIN ANHYDROUS. [Suspect]
     Active Substance: AZITHROMYCIN ANHYDROUS
     Indication: PROPHYLAXIS
  9. BETAMETHASONE. [Suspect]
     Active Substance: BETAMETHASONE
     Indication: MATERNAL THERAPY TO ENHANCE FOETAL LUNG MATURITY
     Route: 064
  10. DOPAMINE [Suspect]
     Active Substance: DOPAMINE HYDROCHLORIDE
     Indication: BLOOD PRESSURE DECREASED
     Route: 065
  11. AZITHROMYCIN ANHYDROUS. [Suspect]
     Active Substance: AZITHROMYCIN ANHYDROUS
     Indication: INFECTION PROPHYLAXIS
     Dosage: EVERY 6X 48 HOURS
     Route: 064

REACTIONS (11)
  - Sepsis neonatal [Fatal]
  - Bradycardia [Fatal]
  - Pulmonary congestion [Fatal]
  - Pneumonia [Fatal]
  - Respiratory acidosis [Fatal]
  - Neonatal respiratory distress syndrome [Fatal]
  - Pulmonary haemorrhage [Fatal]
  - Drug ineffective [Unknown]
  - Escherichia infection [Fatal]
  - Pathogen resistance [Fatal]
  - Foetal exposure during pregnancy [Unknown]
